FAERS Safety Report 24228249 (Version 6)
Quarter: 2025Q2

REPORT INFORMATION
  Report Type: Spontaneous
  Country: US (occurrence: US)
  Receive Date: 20240820
  Receipt Date: 20250507
  Transmission Date: 20250717
  Serious: Yes (Other)
  Sender: BRISTOL-MYERS SQUIBB COMPANY
  Company Number: US-BRISTOL-MYERS SQUIBB COMPANY-2024-129623

PATIENT
  Age: 68 Year
  Sex: Female

DRUGS (5)
  1. LENALIDOMIDE [Suspect]
     Active Substance: LENALIDOMIDE
     Indication: Plasma cell myeloma
     Dosage: TAKE 1 CAPSULE BY MOUTH FOR 14 DAYS ON, THEN 7 DAYS OFF?TAKE 1 CAPSULE WHOLE BY MOUTH WITH WATER AT
     Route: 048
  2. LENALIDOMIDE [Suspect]
     Active Substance: LENALIDOMIDE
     Dosage: TAKE 1 WHOLE CAPSULE BY MOUTH WITH WATER AT THE SAME TIME EVERY DAY ON DAYS 1-14 OF EACH 21 DAY CYCL
     Route: 048
  3. LENALIDOMIDE [Suspect]
     Active Substance: LENALIDOMIDE
     Dosage: TAKE 1 WHOLE CAPSULE BY MOUTH WITH WATER AT THE SAME TIME EVERY DAY ON DAYS 1-14 OF EACH 21 DAY CYCL
     Route: 048
  4. LENALIDOMIDE [Suspect]
     Active Substance: LENALIDOMIDE
     Dosage: TAKE 1 WHOLE CAPSULE BY MOUTH WITH WATER AT THE SAME TIME DAILY ON DAYS 1-21 OF EACH 28-DAY CYCLE
     Route: 048
  5. LENALIDOMIDE [Suspect]
     Active Substance: LENALIDOMIDE
     Dosage: FREQ: TAKE 1 WHOLE CAPSULE BY MOUTH WITH WATER AT THE SAME TIME EVERY DAY ON DAYS 1-21 OF EACH 28 DA
     Route: 048

REACTIONS (5)
  - Skin cancer [Recovering/Resolving]
  - Pruritus [Not Recovered/Not Resolved]
  - Nasopharyngitis [Not Recovered/Not Resolved]
  - White blood cell count decreased [Recovering/Resolving]
  - Neuropathy peripheral [Recovering/Resolving]
